FAERS Safety Report 20996714 (Version 2)
Quarter: 2022Q3

REPORT INFORMATION
  Report Type: Spontaneous
  Country: JP (occurrence: JP)
  Receive Date: 20220623
  Receipt Date: 20220823
  Transmission Date: 20221027
  Serious: Yes (Death)
  Sender: FDA-Public Use
  Company Number: JP-JNJFOC-20220643181

PATIENT
  Age: 29 Year
  Sex: Male

DRUGS (5)
  1. INVEGA [Suspect]
     Active Substance: PALIPERIDONE
     Indication: Schizophrenia
     Dosage: DOSE UNKNOWN
     Route: 048
     Dates: start: 20190405
  2. BLONANSERIN [Concomitant]
     Active Substance: BLONANSERIN
     Route: 048
  3. DEPAKENE [Concomitant]
     Active Substance: VALPROIC ACID
     Route: 048
  4. REFLEX [Concomitant]
     Active Substance: MIRTAZAPINE
     Route: 048
  5. DAYVIGO [Concomitant]
     Active Substance: LEMBOREXANT
     Route: 048

REACTIONS (1)
  - Death [Fatal]
